FAERS Safety Report 4560784-9 (Version None)
Quarter: 2005Q1

REPORT INFORMATION
  Report Type: 
  Country: None (occurrence: None)
  Receive Date: 20050121
  Receipt Date: 20050111
  Transmission Date: 20050727
  Serious: Yes (Other)
  Sender: FDA-Public Use
  Company Number: S05-ESP-08312-01

PATIENT
  Age: 79 Year
  Sex: Female
  Weight: 63 kg

DRUGS (5)
  1. AXURA (MEMANTINE) [Suspect]
     Indication: DEMENTIA ALZHEIMER'S TYPE
     Dosage: 20 MG QD PO
     Route: 048
     Dates: start: 20030901, end: 20041201
  2. METFORMIN HCL [Concomitant]
  3. EXELON [Concomitant]
  4. LORAZEPAM [Concomitant]
  5. ESOMEPRAZOL (ESOMEPRAZOLE) [Concomitant]

REACTIONS (3)
  - DELIRIUM [None]
  - EUPHORIC MOOD [None]
  - RESTLESSNESS [None]
